FAERS Safety Report 7018738-9 (Version None)
Quarter: 2010Q3

REPORT INFORMATION
  Report Type: 
  Country: None (occurrence: None)
  Receive Date: 20100928
  Receipt Date: 20100927
  Transmission Date: 20110219
  Serious: Yes (Death, Life-Threatening)
  Sender: FDA-Public Use
  Company Number: HU-BRISTOL-MYERS SQUIBB COMPANY-15242035

PATIENT
  Age: 66 Year
  Sex: Male
  Weight: 58 kg

DRUGS (19)
  1. CISPLATIN [Suspect]
     Indication: NON-SMALL CELL LUNG CANCER
     Dosage: DISCONTINUED ON 03AUG10
     Dates: start: 20100618, end: 20100722
  2. NECITUMUMAB [Suspect]
     Indication: NON-SMALL CELL LUNG CANCER
     Dosage: LIQUID
     Route: 065
     Dates: start: 20100618, end: 20100729
  3. ALIMTA [Suspect]
     Indication: NON-SMALL CELL LUNG CANCER
     Dosage: DISCONTINUED ON 03AUG10
     Route: 065
     Dates: start: 20100618, end: 20100722
  4. SERETIDE [Concomitant]
     Dosage: DISKUS
     Dates: start: 20100530
  5. SPIRIVA [Concomitant]
     Dates: start: 20100530
  6. VENTOLIN [Concomitant]
     Dates: start: 20100530
  7. DALACIN [Concomitant]
     Dates: start: 20100625
  8. ELOCON [Concomitant]
     Dates: start: 20100625
  9. QUAMATEL [Concomitant]
     Dates: start: 20100630
  10. CLEXANE [Concomitant]
     Dates: start: 20100630
  11. METOPROLOL [Concomitant]
     Dates: start: 20100630
  12. TIAPRIDAL [Concomitant]
     Dates: start: 20100705, end: 20100731
  13. POTASSIUM CHLORATE [Concomitant]
     Dates: start: 20100702
  14. FUROSEMIDE [Concomitant]
     Dates: start: 20100705, end: 20100728
  15. MEGESTROL [Concomitant]
     Dates: start: 20100610, end: 20100731
  16. GLYCEROL [Concomitant]
     Dates: start: 20100801
  17. SODIUM BORATE [Concomitant]
     Dates: start: 20100801
  18. NEUPOGEN [Concomitant]
  19. NEUPOGEN [Concomitant]

REACTIONS (3)
  - NEUTROPENIA [None]
  - SEPSIS [None]
  - THROMBOCYTOPENIA [None]
